FAERS Safety Report 5535104-3 (Version None)
Quarter: 2007Q4

REPORT INFORMATION
  Report Type: 
  Country: None (occurrence: None)
  Receive Date: 20071203
  Receipt Date: 20071120
  Transmission Date: 20080405
  Serious: Yes (Death)
  Sender: FDA-Public Use
  Company Number: GXKR2007EG10108

PATIENT
  Sex: Male

DRUGS (3)
  1. CEFTRIAXONE [Suspect]
     Indication: GASTROENTERITIS
     Dosage: 500 MG,
     Dates: start: 20071113, end: 20071115
  2. UNASYN [Suspect]
     Indication: GASTROENTERITIS
     Dosage: 375 MG, BID,
     Dates: start: 20071113, end: 20071115
  3. ZANTAC 150 [Concomitant]

REACTIONS (6)
  - CONDITION AGGRAVATED [None]
  - DEHYDRATION [None]
  - DIARRHOEA [None]
  - GASTROENTERITIS [None]
  - PYREXIA [None]
  - VOMITING [None]
